FAERS Safety Report 18986844 (Version 3)
Quarter: 2021Q2

REPORT INFORMATION
  Report Type: Not Available
  Country: JP (occurrence: JP)
  Receive Date: 20210309
  Receipt Date: 20210504
  Transmission Date: 20210717
  Serious: Yes (Life-Threatening, Hospitalization)
  Sender: FDA-Public Use
  Company Number: JP-JNJFOC-20210305749

PATIENT
  Age: 59 Year
  Sex: Male
  Weight: 75.9 kg

DRUGS (10)
  1. DEPAKENE?R [Suspect]
     Active Substance: VALPROATE SODIUM
     Indication: PRODUCT USED FOR UNKNOWN INDICATION
     Route: 048
     Dates: end: 20210117
  2. ZYLORIC [Concomitant]
     Active Substance: ALLOPURINOL
     Route: 048
     Dates: end: 20210117
  3. VITAMIN B COMPLEX [Concomitant]
     Active Substance: CYANOCOBALAMIN\DEXPANTHENOL\NIACINAMIDE\PYRIDOXINE HYDROCHLORIDE\RIBOFLAVIN 5^-PHOSPHATE SODIUM\THIAMINE HYDROCHLORIDE\VITAMIN B COMPLEX
     Indication: PROPHYLAXIS
     Route: 065
     Dates: start: 20210119, end: 20210119
  4. INVEGA [Suspect]
     Active Substance: PALIPERIDONE
     Indication: SCHIZOPHRENIA
     Route: 048
     Dates: end: 20210117
  5. DEPAKENE?R [Suspect]
     Active Substance: VALPROATE SODIUM
     Dosage: DOSE UNKNOWN
     Route: 048
     Dates: start: 20210119, end: 20210129
  6. LIMAS [Concomitant]
     Active Substance: LITHIUM CARBONATE
     Dosage: DOSE UNKNOWN
     Route: 048
     Dates: start: 20210119
  7. ALINAMIN F [Concomitant]
     Active Substance: FURSULTIAMINE HYDROCHLORIDE
     Indication: PROPHYLAXIS
     Route: 065
     Dates: start: 20210118
  8. LIMAS [Concomitant]
     Active Substance: LITHIUM CARBONATE
     Route: 048
     Dates: end: 20210117
  9. VITAMIN B COMPLEX [Concomitant]
     Active Substance: CYANOCOBALAMIN\DEXPANTHENOL\NIACINAMIDE\PYRIDOXINE HYDROCHLORIDE\RIBOFLAVIN 5^-PHOSPHATE SODIUM\THIAMINE HYDROCHLORIDE\VITAMIN B COMPLEX
     Indication: PROPHYLAXIS
     Route: 065
     Dates: start: 20210120
  10. DIOVAN [Concomitant]
     Active Substance: VALSARTAN
     Route: 048
     Dates: end: 20210117

REACTIONS (10)
  - Altered state of consciousness [Recovered/Resolved]
  - Fall [Unknown]
  - Ketoacidosis [Unknown]
  - Subarachnoid haemorrhage [Unknown]
  - Chest X-ray abnormal [Unknown]
  - Hyponatraemia [Recovered/Resolved]
  - Hypothermia [Unknown]
  - Hyperammonaemia [Recovering/Resolving]
  - Rhabdomyolysis [Unknown]
  - Muscular weakness [Unknown]

NARRATIVE: CASE EVENT DATE: 20210117
